FAERS Safety Report 5207320-1 (Version None)
Quarter: 2007Q1

REPORT INFORMATION
  Report Type: 
  Country: None (occurrence: None)
  Receive Date: 20070112
  Receipt Date: 20070103
  Transmission Date: 20070707
  Serious: No
  Sender: FDA-Public Use
  Company Number: PHBS2006BR19755

PATIENT
  Age: 6 Year
  Sex: Female

DRUGS (3)
  1. TEGRETOL [Suspect]
     Indication: GRAND MAL CONVULSION
     Dosage: 100 MG, BID
     Route: 048
  2. TEGRETOL [Suspect]
     Dosage: 200 MG, BID
     Route: 048
  3. CLONAZEPAM [Concomitant]

REACTIONS (6)
  - CONVULSION [None]
  - DIZZINESS [None]
  - IRRITABILITY [None]
  - NERVOUSNESS [None]
  - SEDATION [None]
  - SOMNOLENCE [None]
